FAERS Safety Report 16763355 (Version 1)
Quarter: 2019Q3

REPORT INFORMATION
  Report Type: Other
  Country: SG (occurrence: SG)
  Receive Date: 20190902
  Receipt Date: 20190902
  Transmission Date: 20191005
  Serious: Yes (Other)
  Sender: FDA-Public Use
  Company Number: SG-DEXPHARM-20190710

PATIENT
  Sex: Female

DRUGS (6)
  1. UNLABELLED CAPSULES [DEXAMETHASONE] [Suspect]
     Active Substance: DEXAMETHASONE
     Indication: HEADACHE
  2. UNLABLELLED CAPSULES [CHLORPHENIRAMINE] [Suspect]
     Active Substance: CHLORPHENIRAMINE
  3. UNLABLELLED CAPSULES [SILDENAFIL] [Suspect]
     Active Substance: SILDENAFIL
  4. UNLABLELLED CAPSULES [PREDNISOLONE] [Suspect]
     Active Substance: PREDNISOLONE
  5. UNLABLELLED CAPSULES [AMOXICILLIN] [Suspect]
     Active Substance: AMOXICILLIN
  6. UNLABLELLED CAPSULES [DICLOFENAC] [Suspect]
     Active Substance: DICLOFENAC

REACTIONS (1)
  - Cushing^s syndrome [Unknown]
